FAERS Safety Report 11117026 (Version 1)
Quarter: 2015Q2

REPORT INFORMATION
  Report Type: Spontaneous
  Country: US (occurrence: US)
  Receive Date: 20150515
  Receipt Date: 20150515
  Transmission Date: 20150821
  Serious: No
  Sender: FDA-Public Use
  Company Number: US-PFIZER INC-2015154668

PATIENT
  Age: 69 Year
  Sex: Male
  Weight: 72 kg

DRUGS (1)
  1. LIPITOR [Suspect]
     Active Substance: ATORVASTATIN CALCIUM
     Indication: BLOOD CHOLESTEROL INCREASED
     Dosage: 10 MG, ONCE A DAY
     Dates: start: 201504

REACTIONS (4)
  - Insomnia [Unknown]
  - Fatigue [Unknown]
  - Depressed mood [Unknown]
  - Asthenia [Unknown]

NARRATIVE: CASE EVENT DATE: 2015
